FAERS Safety Report 4353488-9 (Version None)
Quarter: 2004Q2

REPORT INFORMATION
  Report Type: 
  Country: None (occurrence: None)
  Receive Date: 20040505
  Receipt Date: 20040427
  Transmission Date: 20050107
  Serious: Yes (Life-Threatening, Hospitalization)
  Sender: FDA-Public Use
  Company Number: PHBS2004NL05727

PATIENT
  Age: 76 Year
  Sex: Female

DRUGS (2)
  1. EXELON [Suspect]
     Dosage: 1.5 MG, QD
     Route: 048
     Dates: end: 20040331
  2. CIPROXIN [Concomitant]
     Indication: URINARY TRACT INFECTION
     Dosage: UNK, UNK
     Dates: start: 20040323

REACTIONS (2)
  - GASTRIC PERFORATION [None]
  - SURGERY [None]
